FAERS Safety Report 5502222-5 (Version None)
Quarter: 2007Q4

REPORT INFORMATION
  Report Type: 
  Country: None (occurrence: None)
  Receive Date: 20071030
  Receipt Date: 20071024
  Transmission Date: 20080405
  Serious: Yes (Other)
  Sender: FDA-Public Use
  Company Number: GB-AVENTIS-200719201GDDC

PATIENT
  Age: 62 Year
  Sex: Female
  Weight: 61.9 kg

DRUGS (6)
  1. ARAVA [Suspect]
     Dates: start: 20050101, end: 20070801
  2. ARAVA [Suspect]
     Dates: start: 20070101
  3. PREDNISOLONE [Concomitant]
  4. HYDROXYCHLOROQUINE SULFATE [Concomitant]
  5. LEVOTHYROXINE SODIUM [Concomitant]
  6. ALENDRONATE SODIUM [Concomitant]

REACTIONS (1)
  - LIVER FUNCTION TEST ABNORMAL [None]
